FAERS Safety Report 8737402 (Version 3)
Quarter: 2012Q4

REPORT INFORMATION
  Report Type: 
  Country: US (occurrence: US)
  Receive Date: 20120822
  Receipt Date: 20121025
  Transmission Date: 20130627
  Serious: Yes (Hospitalization)
  Sender: FDA-Public Use
  Company Number: US-GILEAD-2012-0060084

PATIENT
  Sex: Male

DRUGS (4)
  1. LETAIRIS [Suspect]
     Indication: COR PULMONALE CHRONIC
     Dosage: 5 mg, QD
     Route: 048
     Dates: start: 20110921
  2. LETAIRIS [Suspect]
  3. REMODULIN [Concomitant]
  4. ADCIRCA [Concomitant]

REACTIONS (5)
  - Unevaluable event [Unknown]
  - Abdominal wall abscess [Unknown]
  - Presyncope [Unknown]
  - Asthenia [Unknown]
  - Dizziness [Unknown]
